FAERS Safety Report 15890287 (Version 1)
Quarter: 2019Q1

REPORT INFORMATION
  Report Type: Report from Study
  Country: None (occurrence: BE)
  Receive Date: 20190130
  Receipt Date: 20190130
  Transmission Date: 20190417
  Serious: Yes (Hospitalization)
  Sender: FDA-Public Use
  Company Number: BE-ABBVIE-19S-013-2639699-00

PATIENT
  Sex: Female

DRUGS (3)
  1. DUODOPA [Suspect]
     Active Substance: CARBIDOPA\LEVODOPA
     Indication: PARKINSON^S DISEASE
     Dosage: MD=3ML CD=1.6ML/HR DURING 16HRS  ED=0.5ML
     Route: 050
     Dates: start: 20181119, end: 20190122
  2. STALEVO 100 [Concomitant]
     Dosage: FORM STRENGTH: 100MG/25MG/200MG; RESCUE MEDICATION
  3. STALEVO 100 [Concomitant]
     Indication: PARKINSON^S DISEASE
     Dosage: FORM STRENGTH: 100MG/25MG/200MG
     Route: 048

REACTIONS (2)
  - Hip fracture [Unknown]
  - Device dislocation [Unknown]
